FAERS Safety Report 9180900 (Version 2)
Quarter: 2013Q2

REPORT INFORMATION
  Report Type: Spontaneous
  Country: CN (occurrence: CN)
  Receive Date: 20130322
  Receipt Date: 20130401
  Transmission Date: 20140414
  Serious: Yes (Other)
  Sender: FDA-Public Use
  Company Number: PHHY2013CN027397

PATIENT
  Age: 87 Year
  Sex: Male

DRUGS (5)
  1. LESCOL [Suspect]
     Dosage: 40 MG, QD
     Route: 048
     Dates: start: 20100531, end: 20120425
  2. AMLODIPINE BESYLATE [Concomitant]
     Indication: CORONARY ARTERY DISEASE
  3. ASPIRIN [Concomitant]
     Indication: CORONARY ARTERY DISEASE
  4. CLOPIDOGREL [Concomitant]
     Indication: CORONARY ARTERY DISEASE
  5. VALSARTAN [Concomitant]
     Indication: CORONARY ARTERY DISEASE
     Route: 048

REACTIONS (1)
  - Hepatic neoplasm [Recovering/Resolving]
